FAERS Safety Report 4772473-6 (Version None)
Quarter: 2005Q3

REPORT INFORMATION
  Report Type: 
  Country: None (occurrence: None)
  Receive Date: 20050919
  Receipt Date: 20050825
  Transmission Date: 20060218
  Serious: Yes (Life-Threatening, Hospitalization)
  Sender: FDA-Public Use
  Company Number: TR-NOVOPROD-246565

PATIENT
  Age: 44 Year
  Sex: Female
  Weight: 97 kg

DRUGS (6)
  1. DIOVAN HCT [Concomitant]
     Dates: start: 20050221, end: 20050824
  2. TARDEN [Concomitant]
     Dates: start: 20050221, end: 20050824
  3. LEVEMIR [Suspect]
     Indication: INSULIN-REQUIRING TYPE II DIABETES MELLITUS
     Dosage: 24 IU, QD
     Route: 058
     Dates: start: 20050525
  4. DIOVAN HCT [Concomitant]
     Dates: start: 20050221, end: 20050824
  5. AMARYL [Concomitant]
     Dates: start: 20000101, end: 20050824
  6. GLUCOBAY [Concomitant]
     Dates: start: 20000101, end: 20050824

REACTIONS (3)
  - CORONARY ARTERY DISEASE [None]
  - GLYCOSYLATED HAEMOGLOBIN INCREASED [None]
  - MYOCARDIAL INFARCTION [None]
